FAERS Safety Report 14890202 (Version 1)
Quarter: 2018Q2

REPORT INFORMATION
  Report Type: Report from Study
  Country: AU (occurrence: AU)
  Receive Date: 20180514
  Receipt Date: 20180514
  Transmission Date: 20180711
  Serious: Yes (Other)
  Sender: FDA-Public Use
  Company Number: AU-CIPLA (EU) LIMITED-2018AU17850

PATIENT

DRUGS (2)
  1. CARBOPLATIN. [Suspect]
     Active Substance: CARBOPLATIN
     Indication: SMALL CELL LUNG CANCER EXTENSIVE STAGE
     Dosage: 5 MG/ML, PER MINUTE, OVER 60 MIN, 6 CYCLES EVERY 3 WKS
     Route: 042
  2. IRINOTECAN [Suspect]
     Active Substance: IRINOTECAN
     Indication: SMALL CELL LUNG CANCER EXTENSIVE STAGE
     Dosage: 150 MG/M2, OVER 90 MIN, 6 CYCLES EVERY 3 WKS
     Route: 042

REACTIONS (1)
  - Malignant neoplasm progression [Unknown]
